FAERS Safety Report 20346336 (Version 2)
Quarter: 2022Q1

REPORT INFORMATION
  Report Type: Spontaneous
  Country: US (occurrence: US)
  Receive Date: 20220118
  Receipt Date: 20220314
  Transmission Date: 20220423
  Serious: No
  Sender: FDA-Public Use
  Company Number: US-GW PHARMA-202201USGW00147

PATIENT
  Sex: Male

DRUGS (6)
  1. EPIDIOLEX [Suspect]
     Active Substance: CANNABIDIOL
     Indication: Epilepsy
     Dosage: 280 MILLIGRAM
     Route: 048
     Dates: start: 20211029
  2. ACTHAR [Concomitant]
     Active Substance: CORTICOTROPIN
     Indication: Product used for unknown indication
     Dosage: 0.35 MILLILITER, BID
     Route: 030
  3. ACTHAR [Concomitant]
     Active Substance: CORTICOTROPIN
     Dosage: 0.35 MILLILITER, QD
     Route: 030
  4. ACTHAR [Concomitant]
     Active Substance: CORTICOTROPIN
     Dosage: 0.3 MILLILITER, QD
     Route: 030
  5. ACTHAR [Concomitant]
     Active Substance: CORTICOTROPIN
     Dosage: 0.2 MILLILITER, QD
     Route: 030
  6. ACTHAR [Concomitant]
     Active Substance: CORTICOTROPIN
     Dosage: 0.2 MILLILITER, QOD (FOR 6 DAYS) (LAST DISPENSED IN SEP 2021)
     Route: 030

REACTIONS (6)
  - Weight increased [Unknown]
  - Seizure [Unknown]
  - Product administered to patient of inappropriate age [Unknown]
  - Product use in unapproved indication [Unknown]
  - Product distribution issue [Unknown]
  - Product supply issue [Unknown]
